FAERS Safety Report 23424150 (Version 4)
Quarter: 2025Q1

REPORT INFORMATION
  Report Type: Report from Study
  Country: CA (occurrence: CA)
  Receive Date: 20240120
  Receipt Date: 20250124
  Transmission Date: 20250409
  Serious: Yes (Other)
  Sender: ROCHE
  Company Number: CA-002147023-PHHY2018CA023035

PATIENT
  Age: 65 Year
  Sex: Female

DRUGS (24)
  1. XOLAIR [Suspect]
     Active Substance: OMALIZUMAB
     Indication: Chronic spontaneous urticaria
     Dosage: 300 MG, EVERY 4 WEEKS
     Route: 058
     Dates: start: 20180206
  2. XOLAIR [Suspect]
     Active Substance: OMALIZUMAB
     Route: 058
     Dates: start: 20180302
  3. XOLAIR [Suspect]
     Active Substance: OMALIZUMAB
     Dosage: 300 MG, EVERY 4 WEEKS
     Route: 058
     Dates: start: 20180425
  4. XOLAIR [Suspect]
     Active Substance: OMALIZUMAB
     Dosage: 300 MG,EVERY 4 WEEKS
     Route: 058
     Dates: start: 20180524
  5. XOLAIR [Suspect]
     Active Substance: OMALIZUMAB
     Dosage: 300 MG,EVERY 4 WEEKS
     Route: 058
     Dates: start: 20180621
  6. XOLAIR [Suspect]
     Active Substance: OMALIZUMAB
     Dosage: 300 MG, (EVERY 4 WEEKS)
     Route: 058
     Dates: start: 20180831
  7. XOLAIR [Suspect]
     Active Substance: OMALIZUMAB
     Dosage: 300 MG, (EVERY 4 WEEKS)
     Route: 058
     Dates: start: 20181026
  8. XOLAIR [Suspect]
     Active Substance: OMALIZUMAB
     Dosage: 300 MG, (EVERY 4 WEEKS)
     Route: 058
     Dates: start: 20181120
  9. XOLAIR [Suspect]
     Active Substance: OMALIZUMAB
     Dosage: 300 MG, EVERY 4 WEEKS
     Route: 058
     Dates: start: 20181221
  10. XOLAIR [Suspect]
     Active Substance: OMALIZUMAB
     Dosage: 300 MG, EVERY 4 WEEKS
     Route: 058
     Dates: start: 20190118
  11. XOLAIR [Suspect]
     Active Substance: OMALIZUMAB
     Dosage: 300 MG, EVERY 4 WEEKS
     Route: 058
     Dates: start: 20190510
  12. XOLAIR [Suspect]
     Active Substance: OMALIZUMAB
     Route: 058
     Dates: start: 2017
  13. XOLAIR [Suspect]
     Active Substance: OMALIZUMAB
     Route: 058
     Dates: start: 20230803
  14. XOLAIR [Suspect]
     Active Substance: OMALIZUMAB
     Dosage: SOLUTION FOR INJECTION IN PRE-FILLED SYRINGE
     Route: 058
     Dates: start: 20240410
  15. XOLAIR [Suspect]
     Active Substance: OMALIZUMAB
     Route: 058
  16. XOLAIR [Suspect]
     Active Substance: OMALIZUMAB
     Route: 058
     Dates: start: 20241204
  17. VALSARTAN [Concomitant]
     Active Substance: VALSARTAN
     Indication: Hypertension
     Route: 050
  18. MONTELUKAST [Concomitant]
     Active Substance: MONTELUKAST
     Indication: Chronic spontaneous urticaria
     Dosage: 1 DOSAGE FORM, QD
     Route: 048
     Dates: start: 20170924
  19. CETIRIZINE HYDROCHLORIDE [Concomitant]
     Active Substance: CETIRIZINE HYDROCHLORIDE
     Indication: Chronic spontaneous urticaria
     Route: 065
     Dates: start: 2014
  20. CETIRIZINE HYDROCHLORIDE [Concomitant]
     Active Substance: CETIRIZINE HYDROCHLORIDE
     Dosage: 4 DOSAGE FORM, QD
     Route: 048
     Dates: start: 20170924
  21. COLCHICINE [Concomitant]
     Active Substance: COLCHICINE
     Indication: Product used for unknown indication
     Route: 050
  22. PLAQUENIL [Concomitant]
     Active Substance: HYDROXYCHLOROQUINE SULFATE
     Indication: Product used for unknown indication
     Route: 050
  23. SYNTHROID [Concomitant]
     Active Substance: LEVOTHYROXINE SODIUM
     Indication: Hypothyroidism
     Route: 050
  24. ALLEGRA [Concomitant]
     Active Substance: FEXOFENADINE HYDROCHLORIDE
     Indication: Chronic spontaneous urticaria
     Route: 050
     Dates: start: 2014

REACTIONS (16)
  - Urticaria [Unknown]
  - Pruritus [Not Recovered/Not Resolved]
  - Skin plaque [Recovered/Resolved]
  - Lip oedema [Recovered/Resolved]
  - Rash papular [Unknown]
  - Swelling [Unknown]
  - Lip swelling [Not Recovered/Not Resolved]
  - Blood pressure increased [Unknown]
  - Poor quality sleep [Unknown]
  - Dizziness [Recovering/Resolving]
  - Fatigue [Unknown]
  - Weight decreased [Unknown]
  - Headache [Recovered/Resolved]
  - Alopecia [Unknown]
  - Drug ineffective [Unknown]
  - Rash erythematous [Not Recovered/Not Resolved]

NARRATIVE: CASE EVENT DATE: 20180206
